FAERS Safety Report 21194456 (Version 1)
Quarter: 2022Q3

REPORT INFORMATION
  Report Type: Report from Study
  Country: CN (occurrence: CN)
  Receive Date: 20220810
  Receipt Date: 20220810
  Transmission Date: 20221027
  Serious: No
  Sender: FDA-Public Use
  Company Number: CN-BAXTER-2021BAX031892

PATIENT
  Age: 61 Year
  Sex: Female
  Weight: 50 kg

DRUGS (16)
  1. AMINO ACIDS\DEXTROSE\ELECTROLYTES NOS\SOYBEAN OIL [Suspect]
     Active Substance: AMINO ACIDS\DEXTROSE\ELECTROLYTES NOS\SOYBEAN OIL
     Indication: Product used for unknown indication
     Dosage: INFUSION RATE: 3ML/KG/H, 1500 ML
     Route: 065
     Dates: start: 20210125, end: 20210125
  2. AMINO ACIDS\DEXTROSE\ELECTROLYTES NOS\SOYBEAN OIL [Suspect]
     Active Substance: AMINO ACIDS\DEXTROSE\ELECTROLYTES NOS\SOYBEAN OIL
     Dosage: INFUSION RATE: 3ML/KG/H, 1500 ML
     Route: 065
     Dates: start: 20210126, end: 20210126
  3. ILAPRAZOLE [Concomitant]
     Active Substance: ILAPRAZOLE
     Indication: Antacid therapy
     Dosage: DOSE: 10 MG, ONCE DAILY, ROUTE: INTRAVENOUS(PERIPHERAL VEIN/CENTRAL VEIN)
     Route: 042
     Dates: start: 20210107, end: 20210123
  4. ILAPRAZOLE [Concomitant]
     Active Substance: ILAPRAZOLE
     Indication: Small intestine carcinoma
  5. CEFTIZOXIME SODIUM [Concomitant]
     Active Substance: CEFTIZOXIME SODIUM
     Indication: Antiinflammatory therapy
     Dosage: 2G, THREE TIMES DAILY, ROUTE: INTRAVENOUS(PERIPHERAL VEIN/CENTRAL VEIN)
     Route: 042
     Dates: start: 20210124, end: 20210130
  6. CEFTIZOXIME SODIUM [Concomitant]
     Active Substance: CEFTIZOXIME SODIUM
     Indication: Small intestine carcinoma
  7. HEPARIN CALCIUM [Concomitant]
     Active Substance: HEPARIN CALCIUM
     Indication: Anticoagulant therapy
     Dosage: 4100 IU (INTERNATIONAL UNIT), ONCE DAILY
     Route: 058
     Dates: start: 20210104, end: 20210130
  8. VITAMINS [Concomitant]
     Active Substance: VITAMINS
     Indication: Nutritional supplementation
     Dosage: DOSE: 1 PORTION, ONCE DAILY, ROUTE: INTRAVENOUS(PERIPHERAL VEIN/CENTRAL VEIN)
     Route: 042
     Dates: start: 20210104, end: 20210112
  9. AMINO ACIDS, SOURCE UNSPECIFIED [Concomitant]
     Active Substance: AMINO ACIDS, SOURCE UNSPECIFIED
     Indication: Nutritional supplementation
     Dosage: 250 ML, ONCE DAILY, ROUTE: INTRAVENOUS(PERIPHERAL VEIN/CENTRAL VEIN)
     Route: 042
     Dates: start: 20210104, end: 20210111
  10. SOMATOSTATIN [Concomitant]
     Active Substance: SOMATOSTATIN
     Indication: Prophylaxis
     Dosage: 6 MG, ONCE DAILY, ROUTE: INTRAVENOUS(PERIPHERAL VEIN/CENTRAL VEIN)
     Route: 042
     Dates: start: 20210113, end: 20210118
  11. ALBUMIN HUMAN [Concomitant]
     Active Substance: ALBUMIN HUMAN
     Indication: Nutritional supplementation
     Dosage: 20 G, ONCE DAILY, ROUTE: INTRAVENOUS(PERIPHERAL VEIN/CENTRAL VEIN)
     Route: 042
     Dates: start: 20210116, end: 20210120
  12. GLYCERIN\MEDIUM-CHAIN TRIGLYCERIDES\PHOSPHOLIPID\SOYBEAN OIL [Concomitant]
     Active Substance: GLYCERIN\MEDIUM-CHAIN TRIGLYCERIDES\PHOSPHOLIPID\SOYBEAN OIL
     Indication: Nutritional supplementation
     Dosage: 250 ML, ONCE DAILY, ROUTE: INTRAVENOUS(PERIPHERAL VEIN/CENTRAL VEIN)
     Route: 042
     Dates: start: 20210113, end: 20210122
  13. INOSINE [Concomitant]
     Active Substance: INOSINE
     Indication: Immune enhancement therapy
     Dosage: 0.6 G, ONCE DAILY, ROUTE: INTRAVENOUS(PERIPHERAL VEIN/CENTRAL VEIN)
     Route: 042
     Dates: start: 20210124, end: 20210130
  14. UNSPECIFIED INGREDIENT [Concomitant]
     Active Substance: UNSPECIFIED INGREDIENT
     Indication: Drug therapy
     Dosage: 10 ML
     Route: 065
     Dates: start: 20210125, end: 20210125
  15. UNSPECIFIED INGREDIENT [Concomitant]
     Active Substance: UNSPECIFIED INGREDIENT
     Dosage: 10 ML
     Route: 065
     Dates: start: 20210126, end: 20210126
  16. SODIUM DEMETHYLCANTHARIDATE [Concomitant]
     Indication: Immune enhancement therapy
     Dosage: 20 MG, ONCE DAILY, ROUTE: INTRAVENOUS(PERIPHERAL VEIN/CENTRAL VEIN)
     Route: 042
     Dates: start: 20210104, end: 20210108

REACTIONS (1)
  - Pyrexia [Recovered/Resolved]

NARRATIVE: CASE EVENT DATE: 20210129
